FAERS Safety Report 4713288-4 (Version None)
Quarter: 2005Q3

REPORT INFORMATION
  Report Type: 
  Country: None (occurrence: None)
  Receive Date: 20050713
  Receipt Date: 20050602
  Transmission Date: 20060218
  Serious: Yes (Disabling)
  Sender: FDA-Public Use
  Company Number: US-KINGPHARMUSA00001-K200500767

PATIENT
  Age: 64 Year
  Sex: Female
  Weight: 64 kg

DRUGS (5)
  1. FLORINEF [Suspect]
     Indication: SYNCOPE VASOVAGAL
     Dosage: .05 MG, UNK
     Route: 048
     Dates: start: 20050101, end: 20050501
  2. SUDAFED 12 HOUR [Suspect]
     Indication: HEADACHE
  3. OMEPRAZOLE [Concomitant]
     Dates: end: 20050401
  4. TEMAZEPAM [Concomitant]
  5. CITALOPRAM [Concomitant]
     Dates: start: 20040901

REACTIONS (4)
  - BLINDNESS [None]
  - DRUG INTERACTION [None]
  - EYE PAIN [None]
  - HEADACHE [None]
